FAERS Safety Report 21400708 (Version 2)
Quarter: 2022Q4

REPORT INFORMATION
  Report Type: Report from Study
  Country: US (occurrence: US)
  Receive Date: 20221003
  Receipt Date: 20221014
  Transmission Date: 20230112
  Serious: Yes (Death, Hospitalization, Other)
  Sender: FDA-Public Use
  Company Number: US-ACADIA PHARMACEUTICALS INC.-ACA-2022-PIM-003261

PATIENT
  Age: 85 Year
  Sex: Female

DRUGS (24)
  1. NUPLAZID [Suspect]
     Active Substance: PIMAVANSERIN TARTRATE
     Indication: Parkinson^s disease
     Dosage: 34 MILLIGRAM, QD
     Route: 065
     Dates: start: 20220628, end: 20220911
  2. ACETAMINOPHEN [Concomitant]
     Active Substance: ACETAMINOPHEN
  3. BUSPIRONE [Concomitant]
     Active Substance: BUSPIRONE HYDROCHLORIDE
  4. CARBIDOPA\LEVODOPA [Concomitant]
     Active Substance: CARBIDOPA\LEVODOPA
  5. FOLIC ACID [Concomitant]
     Active Substance: FOLIC ACID
  6. TRESIBA [Concomitant]
     Active Substance: INSULIN DEGLUDEC
  7. LEUCOVORIN [Concomitant]
     Active Substance: LEUCOVORIN
  8. METHOTREXATE [Concomitant]
     Active Substance: METHOTREXATE
  9. MIRTAZAPINE [Concomitant]
     Active Substance: MIRTAZAPINE
  10. NYSTATIN [Concomitant]
     Active Substance: NYSTATIN
     Route: 061
  11. PANTOPRAZOLE [Concomitant]
     Active Substance: PANTOPRAZOLE
  12. QUETIAPINE [Concomitant]
     Active Substance: QUETIAPINE
  13. SERTRALINE [Concomitant]
     Active Substance: SERTRALINE HYDROCHLORIDE
  14. TRAZODONE [Concomitant]
     Active Substance: TRAZODONE HYDROCHLORIDE
  15. ASCORBIC ACID [Concomitant]
     Active Substance: ASCORBIC ACID
  16. ASPIRIN [Concomitant]
     Active Substance: ASPIRIN
  17. CALCIUM CARBONATE [Concomitant]
     Active Substance: CALCIUM CARBONATE
  18. TRIAMCINOLONE [Concomitant]
     Active Substance: TRIAMCINOLONE
     Route: 061
  19. CYANOCOBALAMIN [Concomitant]
     Active Substance: CYANOCOBALAMIN
  20. DONEPEZIL [Concomitant]
     Active Substance: DONEPEZIL
  21. ERGOCALCIFEROL [Concomitant]
     Active Substance: ERGOCALCIFEROL
  22. IRBESARTAN [Concomitant]
     Active Substance: IRBESARTAN
  23. MELATONIN [Concomitant]
     Active Substance: MELATONIN
  24. PRAMIPEXOLE [Concomitant]
     Active Substance: PRAMIPEXOLE
     Route: 061

REACTIONS (4)
  - Death [Fatal]
  - Failure to thrive [Recovered/Resolved]
  - Vomiting [Recovered/Resolved]
  - Nausea [Recovered/Resolved]

NARRATIVE: CASE EVENT DATE: 20220831
